FAERS Safety Report 15254972 (Version 2)
Quarter: 2018Q3

REPORT INFORMATION
  Report Type: Spontaneous
  Country: TW (occurrence: TW)
  Receive Date: 20180808
  Receipt Date: 20180817
  Transmission Date: 20181010
  Serious: Yes (Death, Hospitalization, Other)
  Sender: FDA-Public Use
  Company Number: TW-ASTRAZENECA-2018SE98114

PATIENT
  Age: 63 Year
  Sex: Female

DRUGS (1)
  1. FASLODEX [Suspect]
     Active Substance: FULVESTRANT
     Indication: BREAST CANCER
     Route: 030
     Dates: start: 20171218, end: 20180326

REACTIONS (4)
  - Nephritis [Fatal]
  - Device related infection [Unknown]
  - Urinary tract infection [Unknown]
  - Malignant neoplasm progression [Unknown]

NARRATIVE: CASE EVENT DATE: 201801
